FAERS Safety Report 11540497 (Version 1)
Quarter: 2015Q3

REPORT INFORMATION
  Report Type: Spontaneous
  Country: US (occurrence: US)
  Receive Date: 20150923
  Receipt Date: 20150923
  Transmission Date: 20151125
  Serious: No
  Sender: FDA-Public Use
  Company Number: US-BEH-2015048350

PATIENT
  Sex: Male
  Weight: 79 kg

DRUGS (37)
  1. IPRATROPIUM [Concomitant]
     Active Substance: IPRATROPIUM
  2. CARVEDILOL. [Concomitant]
     Active Substance: CARVEDILOL
  3. GUAIFENESIN. [Concomitant]
     Active Substance: GUAIFENESIN
  4. HEPARIN [Concomitant]
     Active Substance: HEPARIN SODIUM
  5. CIALIS [Concomitant]
     Active Substance: TADALAFIL
  6. CENTRUM SILVER [Concomitant]
     Active Substance: VITAMINS
  7. METAMUCIL CLEAR AND NATURAL [Concomitant]
  8. OXYGEN. [Concomitant]
     Active Substance: OXYGEN
  9. XALATAN [Concomitant]
     Active Substance: LATANOPROST
  10. CRESTOR [Concomitant]
     Active Substance: ROSUVASTATIN CALCIUM
  11. METHYLPREDNISOLONE. [Concomitant]
     Active Substance: METHYLPREDNISOLONE
  12. HYDRALAZINE [Concomitant]
     Active Substance: HYDRALAZINE HYDROCHLORIDE
  13. NICOTINE TRANSDERMAL SYSTEM [Concomitant]
     Active Substance: NICOTINE
  14. DIPHENHYDRAMINE. [Concomitant]
     Active Substance: DIPHENHYDRAMINE
  15. ASTELIN [Concomitant]
     Active Substance: AZELASTINE HYDROCHLORIDE
  16. AMLODIPINE [Concomitant]
     Active Substance: AMLODIPINE BESYLATE
  17. CALCIUM [Concomitant]
     Active Substance: CALCIUM
  18. BIAXIN [Concomitant]
     Active Substance: CLARITHROMYCIN
  19. BACTRIM [Concomitant]
     Active Substance: SULFAMETHOXAZOLE\TRIMETHOPRIM
  20. NAC [Concomitant]
  21. ACETYLCYSTEINE. [Concomitant]
     Active Substance: ACETYLCYSTEINE
  22. TAMSULOSIN [Concomitant]
     Active Substance: TAMSULOSIN
  23. CETIRIZINE [Concomitant]
     Active Substance: CETIRIZINE HYDROCHLORIDE
  24. LEVAQUIN [Concomitant]
     Active Substance: LEVOFLOXACIN
  25. CALTRATE [Concomitant]
     Active Substance: CALCIUM CARBONATE
  26. PRIVIGEN [Suspect]
     Active Substance: HUMAN IMMUNOGLOBULIN G
     Indication: IMMUNODEFICIENCY COMMON VARIABLE
     Route: 042
  27. PRIVIGEN [Suspect]
     Active Substance: HUMAN IMMUNOGLOBULIN G
     Route: 042
  28. OMNICEF [Concomitant]
     Active Substance: CEFDINIR
  29. CLONAZEPAM. [Concomitant]
     Active Substance: CLONAZEPAM
  30. LATANOPROST. [Concomitant]
     Active Substance: LATANOPROST
  31. ALBUTEROL. [Concomitant]
     Active Substance: ALBUTEROL
  32. EPIPEN [Concomitant]
     Active Substance: EPINEPHRINE
  33. MEDROL [Concomitant]
     Active Substance: METHYLPREDNISOLONE
  34. PROTONIX [Concomitant]
     Active Substance: PANTOPRAZOLE SODIUM
  35. BENZONATATE. [Concomitant]
     Active Substance: BENZONATATE
  36. SODIUM CHLORIDE. [Concomitant]
     Active Substance: SODIUM CHLORIDE
  37. SYMBICORT [Concomitant]
     Active Substance: BUDESONIDE\FORMOTEROL FUMARATE DIHYDRATE

REACTIONS (2)
  - Sinusitis [Unknown]
  - Upper respiratory tract infection [Unknown]
